FAERS Safety Report 7533133-1 (Version None)
Quarter: 2011Q2

REPORT INFORMATION
  Report Type: 
  Country: None (occurrence: None)
  Receive Date: 20110608
  Receipt Date: 20020521
  Transmission Date: 20111010
  Serious: Yes (Death)
  Sender: FDA-Public Use
  Company Number: PHBS2002CA06142

PATIENT
  Sex: Female

DRUGS (10)
  1. LOPID [Concomitant]
     Route: 065
  2. NOZINAN [Concomitant]
     Dosage: 10 MG, QHS
     Route: 065
  3. CITALOPRAM HYDROBROMIDE [Concomitant]
     Route: 065
  4. COLACE [Concomitant]
     Route: 065
  5. CLOZAPINE [Suspect]
     Dosage: 500 MG, QD
     Route: 048
     Dates: start: 19970527
  6. VITAMIN B NOS [Concomitant]
     Route: 065
  7. LEVAQUIN [Concomitant]
     Dosage: 500 MG, QD
     Route: 065
     Dates: start: 20020519
  8. SENOKOT [Concomitant]
     Route: 065
  9. SERAX [Concomitant]
     Route: 065
  10. ASCORBIC ACID [Concomitant]
     Route: 065

REACTIONS (4)
  - GRAND MAL CONVULSION [None]
  - PNEUMONIA [None]
  - FALL [None]
  - METASTASES TO CENTRAL NERVOUS SYSTEM [None]
